FAERS Safety Report 4277618-2 (Version None)
Quarter: 2004Q1

REPORT INFORMATION
  Report Type: 
  Country: None (occurrence: None)
  Receive Date: 20040121
  Receipt Date: 20040112
  Transmission Date: 20041129
  Serious: Yes (Death)
  Sender: FDA-Public Use
  Company Number: 2003-05-3439

PATIENT
  Age: 19 Year
  Sex: Female

DRUGS (4)
  1. ALBUTEROL [Suspect]
     Indication: RESPIRATORY DISORDER
     Dosage: INHALATION
     Route: 055
  2. SEREVENT INHIALATION AEROSOL [Suspect]
     Dates: start: 20010218
  3. FLOVENT [Suspect]
     Dates: start: 20010218
  4. PENCILLIN G [Suspect]
     Dates: start: 20010218

REACTIONS (1)
  - DYSPNOEA [None]
